FAERS Safety Report 9728031 (Version 1)
Quarter: 2013Q4

REPORT INFORMATION
  Report Type: Spontaneous
  Country: US (occurrence: None)
  Receive Date: 20131203
  Receipt Date: 20131203
  Transmission Date: 20140711
  Serious: Yes (Hospitalization, Disabling)
  Sender: FDA-Public Use
  Company Number: None

PATIENT
  Age: 72 Year
  Sex: Male
  Weight: 77.11 kg

DRUGS (1)
  1. TESTIM 50MG [Suspect]
     Indication: BLOOD TESTOSTERONE DECREASED
     Dosage: 1 PACK, APPLIEA TO A SURFACE, USUALLY THE SKIN
     Dates: start: 20120615, end: 20130630

REACTIONS (1)
  - Cerebrovascular accident [None]
